FAERS Safety Report 23728756 (Version 1)
Quarter: 2024Q2

REPORT INFORMATION
  Report Type: Report from Study
  Country: US (occurrence: US)
  Receive Date: 20240410
  Receipt Date: 20240410
  Transmission Date: 20240716
  Serious: Yes (Death, Other)
  Sender: FDA-Public Use
  Company Number: US-ABBVIE-5711198

PATIENT
  Age: 86 Year
  Sex: Male

DRUGS (1)
  1. CREON [Suspect]
     Active Substance: PANCRELIPASE AMYLASE\PANCRELIPASE LIPASE\PANCRELIPASE PROTEASE
     Indication: Product used for unknown indication
     Dosage: STRENGTH: 12000 UNIT, 6CAPS WITH MEAL, 2CAPS WITH SNACK
     Route: 048

REACTIONS (1)
  - Pancreatic carcinoma recurrent [Fatal]

NARRATIVE: CASE EVENT DATE: 20231201
